FAERS Safety Report 11811598 (Version 2)
Quarter: 2015Q4

REPORT INFORMATION
  Report Type: Spontaneous
  Country: JP (occurrence: JP)
  Receive Date: 20151208
  Receipt Date: 20151228
  Transmission Date: 20160305
  Serious: Yes (Other)
  Sender: FDA-Public Use
  Company Number: JP-AMGEN-JPNSP2015129890

PATIENT
  Age: 71 Year
  Sex: Male

DRUGS (1)
  1. NESP [Suspect]
     Active Substance: DARBEPOETIN ALFA
     Indication: NEPHROGENIC ANAEMIA
     Dosage: 120 MUG, QMO
     Route: 065
     Dates: start: 201411

REACTIONS (2)
  - Myelodysplastic syndrome [Unknown]
  - Azotaemia [Unknown]

NARRATIVE: CASE EVENT DATE: 20151125
